FAERS Safety Report 18474848 (Version 1)
Quarter: 2020Q4

REPORT INFORMATION
  Report Type: Report from Study
  Country: US (occurrence: US)
  Receive Date: 20201106
  Receipt Date: 20201106
  Transmission Date: 20210114
  Serious: Yes (Other)
  Sender: FDA-Public Use
  Company Number: US-BRISTOL-MYERS SQUIBB COMPANY-BMS-2020-082667

PATIENT
  Sex: Female
  Weight: 65.77 kg

DRUGS (2)
  1. SYNTHROID [Concomitant]
     Active Substance: LEVOTHYROXINE SODIUM
     Indication: PRODUCT USED FOR UNKNOWN INDICATION
     Dosage: SHE ROTATES 0.075 MG AND 0.088 MG
     Route: 065
  2. APIXABAN [Suspect]
     Active Substance: APIXABAN
     Indication: CEREBROVASCULAR ACCIDENT PROPHYLAXIS
     Dosage: 5 MILLIGRAM, BID
     Route: 048
     Dates: start: 202009

REACTIONS (7)
  - Head discomfort [Unknown]
  - Arthralgia [Unknown]
  - Abdominal discomfort [Unknown]
  - Dysgeusia [Unknown]
  - Atrial fibrillation [Unknown]
  - Pollakiuria [Unknown]
  - Asthenia [Unknown]
